FAERS Safety Report 7626463-6 (Version None)
Quarter: 2011Q3

REPORT INFORMATION
  Report Type: 
  Country: None (occurrence: None)
  Receive Date: 20110714
  Receipt Date: 20110628
  Transmission Date: 20111222
  Serious: Yes (Hospitalization)
  Sender: FDA-Public Use
  Company Number: PTU-11-05

PATIENT
  Age: 34 Year
  Sex: Female

DRUGS (1)
  1. PROPYLTHIOURACIL [Suspect]
     Indication: BASEDOW'S DISEASE
     Dosage: 150MG/2X DAY

REACTIONS (12)
  - ASTHENIA [None]
  - JAUNDICE [None]
  - CHOLESTASIS [None]
  - HEPATITIS [None]
  - MALAISE [None]
  - CONFUSIONAL STATE [None]
  - VOMITING [None]
  - HEPATIC NECROSIS [None]
  - NAUSEA [None]
  - HEPATIC ENCEPHALOPATHY [None]
  - LIVER TRANSPLANT [None]
  - TRANSPLANT REJECTION [None]
